FAERS Safety Report 5297425-1 (Version None)
Quarter: 2007Q1

REPORT INFORMATION
  Report Type: 
  Country: None (occurrence: None)
  Receive Date: 20070201
  Receipt Date: 20061025
  Transmission Date: 20070707
  Serious: No
  Sender: FDA-Public Use
  Company Number: 2006PV023968

PATIENT
  Age: 76 Year
  Sex: Male
  Weight: 74.8435 kg

DRUGS (4)
  1. BYETTA [Suspect]
     Indication: DIABETES MELLITUS NON-INSULIN-DEPENDENT
     Dosage: 5 MCG;QD;SC
     Route: 058
     Dates: start: 20061001, end: 20061024
  2. METFORMIN SR [Concomitant]
  3. FORADIL [Concomitant]
  4. SPIRIVA [Concomitant]

REACTIONS (4)
  - BACK PAIN [None]
  - COUGH [None]
  - DYSPEPSIA [None]
  - DYSPNOEA [None]
